FAERS Safety Report 7986795-9 (Version None)
Quarter: 2011Q4

REPORT INFORMATION
  Report Type: 
  Country: None (occurrence: None)
  Receive Date: 20111216
  Receipt Date: 20110823
  Transmission Date: 20120403
  Serious: No
  Sender: FDA-Public Use
  Company Number: US-BRISTOL-MYERS SQUIBB COMPANY-15994940

PATIENT
  Age: 41 Year
  Sex: Male
  Weight: 88 kg

DRUGS (6)
  1. TRAZODONE HCL [Concomitant]
  2. PERCOCET [Concomitant]
  3. ABILIFY [Suspect]
  4. CYMBALTA [Concomitant]
  5. VALIUM [Concomitant]
  6. ALPRAZOLAM [Concomitant]

REACTIONS (3)
  - MUSCLE TWITCHING [None]
  - MUSCLE SPASMS [None]
  - BLOOD CREATINE PHOSPHOKINASE INCREASED [None]
